FAERS Safety Report 9524287 (Version 3)
Quarter: 2014Q3

REPORT INFORMATION
  Report Type: Spontaneous
  Country: JP (occurrence: None)
  Receive Date: 20130912
  Receipt Date: 20140703
  Transmission Date: 20150326
  Serious: Yes (Death, Hospitalization)
  Sender: FDA-Public Use
  Company Number: ABR_01107_2013

PATIENT
  Age: 73 Year
  Sex: Male
  Weight: 67.1 kg

DRUGS (2)
  1. GLIADEL [Suspect]
     Active Substance: CARMUSTINE
     Indication: MALIGNANT GLIOMA
     Dosage: 8 DF, 1X [61.6 MG] INTRACEREBRAL
     Dates: start: 20130509
  2. TEMODAL [Concomitant]
     Active Substance: TEMOZOLOMIDE

REACTIONS (12)
  - Brain oedema [None]
  - Somnolence [None]
  - Meningitis [None]
  - CSF test abnormal [None]
  - Pyrexia [None]
  - Hemiplegia [None]
  - Condition aggravated [None]
  - Implant site oedema [None]
  - Procedural complication [None]
  - Chills [None]
  - Klebsiella test positive [None]
  - Implant site reaction [None]

NARRATIVE: CASE EVENT DATE: 20130516
